FAERS Safety Report 4346440-0 (Version None)
Quarter: 2004Q2

REPORT INFORMATION
  Report Type: 
  Country: None (occurrence: None)
  Receive Date: 20040426
  Receipt Date: 20030122
  Transmission Date: 20050107
  Serious: No
  Sender: FDA-Public Use
  Company Number: US-BRISTOL-MYERS SQUIBB COMPANY-12165452

PATIENT
  Age: 71 Year
  Sex: Female
  Weight: 94 kg

DRUGS (7)
  1. CARBOPLATIN [Suspect]
     Indication: OVARIAN CANCER
     Dosage: INITIAL DOSE ON 31-DEC-2002  2K64254, EXPIRATION DATE: 31-AUG-2005
     Route: 042
     Dates: start: 20030121, end: 20030121
  2. ANZEMET [Concomitant]
     Indication: PREMEDICATION
     Route: 042
     Dates: start: 20030121
  3. DECADRON [Concomitant]
     Indication: PREMEDICATION
     Route: 042
     Dates: start: 20030121
  4. PEPCID [Concomitant]
     Indication: PREMEDICATION
     Route: 042
     Dates: start: 20030121
  5. BENADRYL [Concomitant]
     Indication: PREMEDICATION
     Route: 042
     Dates: start: 20030121
  6. SYNTHROID [Concomitant]
  7. LIPITOR [Concomitant]

REACTIONS (2)
  - ABDOMINAL PAIN [None]
  - CHEST PAIN [None]
